FAERS Safety Report 16322011 (Version 1)
Quarter: 2019Q2

REPORT INFORMATION
  Report Type: Spontaneous
  Country: JP (occurrence: JP)
  Receive Date: 20190516
  Receipt Date: 20190516
  Transmission Date: 20190711
  Serious: Yes (Death, Other)
  Sender: FDA-Public Use
  Company Number: JP-FERRINGPH-2019FE02738

PATIENT

DRUGS (6)
  1. GONAX [Suspect]
     Active Substance: DEGARELIX
     Indication: PROSTATE CANCER
     Dosage: 80 MG, EVERY 4 WEEKS
     Route: 058
  2. TRAMAL [Concomitant]
     Active Substance: TRAMADOL
  3. RANMARK [Concomitant]
     Active Substance: DENOSUMAB
  4. DENOTAS [Concomitant]
     Active Substance: CALCIUM CARBONATE\CHOLECALCIFEROL\MAGNESIUM CARBONATE
  5. ETODOLAC. [Concomitant]
     Active Substance: ETODOLAC
  6. BICALUTAMIDE. [Concomitant]
     Active Substance: BICALUTAMIDE

REACTIONS (1)
  - Agranulocytosis [Fatal]
